FAERS Safety Report 14926281 (Version 1)
Quarter: 2018Q2

REPORT INFORMATION
  Report Type: Spontaneous
  Country: FR (occurrence: FR)
  Receive Date: 20180523
  Receipt Date: 20180523
  Transmission Date: 20180711
  Serious: Yes (Hospitalization)
  Sender: FDA-Public Use
  Company Number: FR-TEVA-2018-FR-895588

PATIENT
  Age: 42 Year
  Sex: Male

DRUGS (4)
  1. COCAINE [Suspect]
     Active Substance: COCAINE
     Dosage: INCONNUE
     Route: 065
     Dates: start: 20180211, end: 20180211
  2. ALPRAZOLAM. [Suspect]
     Active Substance: ALPRAZOLAM
     Dates: start: 20180211, end: 20180211
  3. DEROXAT [Suspect]
     Active Substance: PAROXETINE HYDROCHLORIDE
     Dosage: INCONNUE
     Route: 048
     Dates: start: 20180211, end: 20180211
  4. DEPAMIDE [Suspect]
     Active Substance: VALPROMIDE
     Dosage: GASTRO-RESISTANT COATED TABLET
     Route: 048
     Dates: start: 20180211, end: 20180211

REACTIONS (1)
  - Abnormal behaviour [Recovered/Resolved]

NARRATIVE: CASE EVENT DATE: 20180212
